FAERS Safety Report 7159374-3 (Version None)
Quarter: 2010Q4

REPORT INFORMATION
  Report Type: 
  Country: None (occurrence: None)
  Receive Date: 20101214
  Receipt Date: 20100825
  Transmission Date: 20110411
  Serious: No
  Sender: FDA-Public Use
  Company Number: US-ASTRAZENECA-2010SE40089

PATIENT
  Age: 81 Year
  Sex: Male

DRUGS (2)
  1. CRESTOR [Suspect]
     Indication: BLOOD CHOLESTEROL INCREASED
     Route: 048
     Dates: start: 20100701
  2. NIASPAN [Suspect]
     Indication: BLOOD CHOLESTEROL INCREASED
     Dosage: DAILY
     Route: 048
     Dates: start: 20100825, end: 20100825

REACTIONS (5)
  - BLOOD CHOLESTEROL ABNORMAL [None]
  - DRUG INEFFECTIVE [None]
  - HOT FLUSH [None]
  - HYPERCHLORHYDRIA [None]
  - PAIN IN EXTREMITY [None]
